FAERS Safety Report 22520806 (Version 1)
Quarter: 2023Q2

REPORT INFORMATION
  Report Type: Spontaneous
  Country: US (occurrence: US)
  Receive Date: 20230605
  Receipt Date: 20230605
  Transmission Date: 20230721
  Serious: No
  Sender: FDA-Public Use
  Company Number: US-BAYER-2023A070550

PATIENT
  Age: 54 Year
  Sex: Male

DRUGS (2)
  1. ADEMPAS [Suspect]
     Active Substance: RIOCIGUAT
     Indication: Pulmonary hypertension
     Dosage: 0.5 MG, TID
     Dates: start: 20230514
  2. AMBRISENTAN [Suspect]
     Active Substance: AMBRISENTAN
     Indication: Pulmonary arterial hypertension
     Dosage: 10 MG, QD
     Dates: start: 202304

REACTIONS (3)
  - Product dose omission issue [None]
  - Dyspnoea [Not Recovered/Not Resolved]
  - Muscle spasms [None]

NARRATIVE: CASE EVENT DATE: 20230510
